FAERS Safety Report 11038976 (Version 3)
Quarter: 2015Q3

REPORT INFORMATION
  Report Type: Spontaneous
  Country: US (occurrence: US)
  Receive Date: 20150416
  Receipt Date: 20150727
  Transmission Date: 20151125
  Serious: No
  Sender: FDA-Public Use
  Company Number: US-GLAXOSMITHKLINE-US2015048509

PATIENT
  Age: 68 Year
  Sex: Female

DRUGS (1)
  1. ADVAIR DISKUS [Suspect]
     Active Substance: FLUTICASONE PROPIONATE\SALMETEROL XINAFOATE
     Indication: WHEEZING
     Dosage: 1 PUFF(S), 1D
     Route: 055
     Dates: start: 2010

REACTIONS (5)
  - Retching [Recovered/Resolved]
  - Choking sensation [Recovered/Resolved]
  - Product contamination physical [Recovered/Resolved]
  - Cough [Recovered/Resolved]
  - Product quality issue [Unknown]

NARRATIVE: CASE EVENT DATE: 20150406
